FAERS Safety Report 9522198 (Version 1)
Quarter: 2013Q3

REPORT INFORMATION
  Report Type: Spontaneous
  Country: US (occurrence: None)
  Receive Date: 20130911
  Receipt Date: 20130911
  Transmission Date: 20140515
  Serious: No
  Sender: FDA-Public Use
  Company Number: AEUSA201200448

PATIENT
  Age: 58 Year
  Sex: Male

DRUGS (1)
  1. GAMMAKED [Suspect]
     Indication: POLYNEUROPATHY IDIOPATHIC PROGRESSIVE
     Route: 042
     Dates: start: 201208, end: 201208

REACTIONS (2)
  - Rash [None]
  - Dyspnoea [None]
